FAERS Safety Report 19515048 (Version 1)
Quarter: 2021Q3

REPORT INFORMATION
  Report Type: Spontaneous
  Country: US (occurrence: US)
  Receive Date: 20210709
  Receipt Date: 20210709
  Transmission Date: 20211014
  Serious: Yes (Other)
  Sender: FDA-Public Use
  Company Number: US-SA-2021SA226543

PATIENT
  Sex: Female

DRUGS (3)
  1. PLAVIX [Suspect]
     Active Substance: CLOPIDOGREL BISULFATE
  2. ELIQUIS [Suspect]
     Active Substance: APIXABAN
     Dosage: 5 MG
     Route: 048
     Dates: start: 20210226
  3. ELIQUIS [Suspect]
     Active Substance: APIXABAN
     Route: 048
     Dates: start: 20210226

REACTIONS (4)
  - Swelling [Unknown]
  - Oedema [Unknown]
  - Drug hypersensitivity [Unknown]
  - Thrombosis [Unknown]
